FAERS Safety Report 6411993-5 (Version None)
Quarter: 2009Q4

REPORT INFORMATION
  Report Type: 
  Country: None (occurrence: None)
  Receive Date: 20091023
  Receipt Date: 20091013
  Transmission Date: 20100525
  Serious: Yes (Hospitalization, Other)
  Sender: FDA-Public Use
  Company Number: US-ABBOTT-09P-163-0602549-00

PATIENT
  Sex: Male
  Weight: 74.91 kg

DRUGS (2)
  1. HUMIRA [Suspect]
     Indication: CROHN'S DISEASE
     Route: 058
     Dates: start: 20070507
  2. ENTOCORT EC [Concomitant]
     Indication: CROHN'S DISEASE

REACTIONS (14)
  - ABDOMINAL PAIN [None]
  - DELUSION [None]
  - HALLUCINATION [None]
  - HYPOAESTHESIA FACIAL [None]
  - HYPOAESTHESIA ORAL [None]
  - MENTAL DISORDER [None]
  - NAUSEA [None]
  - PARAESTHESIA [None]
  - PARAESTHESIA ORAL [None]
  - PHOTOPHOBIA [None]
  - QUALITY OF LIFE DECREASED [None]
  - SCHIZOAFFECTIVE DISORDER BIPOLAR TYPE [None]
  - SUICIDE ATTEMPT [None]
  - VOMITING [None]
